FAERS Safety Report 9658920 (Version 1)
Quarter: 2013Q4

REPORT INFORMATION
  Report Type: Spontaneous
  Country: US (occurrence: US)
  Receive Date: 20131030
  Receipt Date: 20131030
  Transmission Date: 20140711
  Serious: No
  Sender: FDA-Public Use
  Company Number: US-009507513-1310USA011036

PATIENT
  Age: 49 Year
  Sex: Male

DRUGS (2)
  1. FINASTERIDE [Suspect]
     Indication: ALOPECIA
     Dosage: UNK UNK, QD
     Route: 048
     Dates: start: 201307
  2. PROPECIA [Concomitant]
     Indication: ALOPECIA
     Dosage: UNK UNK, QD
     Route: 048
     Dates: end: 201307

REACTIONS (2)
  - Alopecia [Unknown]
  - Drug ineffective [Unknown]
